FAERS Safety Report 9768603 (Version 2)
Quarter: 2014Q1

REPORT INFORMATION
  Report Type: Report from Study
  Country: AU (occurrence: AU)
  Receive Date: 20131218
  Receipt Date: 20140223
  Transmission Date: 20141002
  Serious: Yes (Hospitalization)
  Sender: FDA-Public Use
  Company Number: AU-AMGEN-AUSCT2013087313

PATIENT
  Age: 40 Year
  Sex: Male

DRUGS (1)
  1. PANITUMUMAB [Suspect]
     Indication: BILE DUCT CANCER
     Dosage: UNK
     Route: 065

REACTIONS (1)
  - Deep vein thrombosis [Recovered/Resolved]
